FAERS Safety Report 9809390 (Version 1)
Quarter: 2014Q1

REPORT INFORMATION
  Report Type: Spontaneous
  Country: FR (occurrence: FR)
  Receive Date: 20140110
  Receipt Date: 20140110
  Transmission Date: 20141002
  Serious: Yes (Hospitalization)
  Sender: FDA-Public Use
  Company Number: FR-WATSON-2013-24572

PATIENT
  Age: 76 Year
  Sex: Female
  Weight: 60 kg

DRUGS (17)
  1. GABAPENTINE [Suspect]
     Indication: PRODUCT USED FOR UNKNOWN INDICATION
     Dosage: 1200 MG, DAILY
     Dates: start: 20121004, end: 20121004
  2. GABAPENTINE [Suspect]
     Dosage: 1800 MG, DAILY
     Dates: start: 20120913, end: 20121003
  3. GABAPENTINE [Suspect]
     Dosage: 1200 MG, DAILY
     Dates: start: 20120907, end: 20120912
  4. GABAPENTINE [Suspect]
     Dosage: 600 MG, DAILY
     Dates: start: 20120905, end: 20120906
  5. GABAPENTINE [Suspect]
     Dosage: 900 MG, DAILY
     Dates: start: 20120730, end: 20120905
  6. GABAPENTINE [Suspect]
     Dosage: 600 MG, DAILY
     Dates: start: 20120728, end: 20120729
  7. GABAPENTINE [Suspect]
     Dosage: 300 MG, DAILY
     Route: 048
     Dates: start: 20120724, end: 20120727
  8. ENDOXAN /00021101/ [Suspect]
     Indication: PRODUCT USED FOR UNKNOWN INDICATION
     Dosage: 1000 MG ON 23JUL, 17AUG, 20SEP
     Route: 042
     Dates: start: 20120723, end: 20120923
  9. KARDEGIC [Concomitant]
     Indication: PRODUCT USED FOR UNKNOWN INDICATION
     Dosage: 75 MG
     Route: 048
  10. SOLUPRED                           /00016201/ [Concomitant]
     Indication: PRODUCT USED FOR UNKNOWN INDICATION
     Dosage: 20 MG
     Route: 048
     Dates: start: 20120613
  11. SKENAN [Concomitant]
     Indication: PRODUCT USED FOR UNKNOWN INDICATION
     Dosage: 10 MG
     Route: 048
     Dates: start: 20120829
  12. DOMPERIDONE [Concomitant]
     Indication: PRODUCT USED FOR UNKNOWN INDICATION
     Dosage: UNK, UNKNOWN
     Route: 065
  13. EUPANTOL [Concomitant]
     Indication: PRODUCT USED FOR UNKNOWN INDICATION
     Dosage: 20 MG, DAILY
     Route: 048
  14. DOLIPRANE [Concomitant]
     Indication: PRODUCT USED FOR UNKNOWN INDICATION
     Dosage: PRN
     Route: 048
  15. DUPHALAC                           /00163401/ [Concomitant]
     Indication: PRODUCT USED FOR UNKNOWN INDICATION
     Dosage: 2 DF, DAILY
     Route: 065
  16. GAVISCON                           /00237601/ [Concomitant]
     Indication: PRODUCT USED FOR UNKNOWN INDICATION
     Dosage: 3 DF, DAILY
     Route: 065
  17. GAVISCON                           /00237601/ [Concomitant]
     Indication: PRODUCT USED FOR UNKNOWN INDICATION

REACTIONS (1)
  - Hepatitis [Recovered/Resolved]
